FAERS Safety Report 7224546-6 (Version None)
Quarter: 2011Q1

REPORT INFORMATION
  Report Type: 
  Country: None (occurrence: None)
  Receive Date: 20110106
  Receipt Date: 20110106
  Transmission Date: 20110831
  Serious: Yes (Hospitalization)
  Sender: FDA-Public Use
  Company Number: None

PATIENT
  Age: 40 Year
  Sex: Female
  Weight: 129.54 kg

DRUGS (6)
  1. BACTRIM [Suspect]
     Indication: CELLULITIS
     Dosage: PO  RECENT
  2. HYDROCHLOROTHIAZIDE [Concomitant]
  3. AMLODIPINE [Concomitant]
  4. CLONIDINE [Concomitant]
  5. PERCOCET [Concomitant]
  6. METOPROLOL XR [Concomitant]

REACTIONS (1)
  - RENAL FAILURE ACUTE [None]
